FAERS Safety Report 10340641 (Version 2)
Quarter: 2014Q3

REPORT INFORMATION
  Report Type: Spontaneous
  Country: US (occurrence: None)
  Receive Date: 20140722
  Receipt Date: 20140804
  Transmission Date: 20150326
  Serious: Yes (Death)
  Sender: FDA-Public Use
  Company Number: UNT-2014-003895

PATIENT
  Age: 68 Year
  Sex: Male
  Weight: 64.9 kg

DRUGS (2)
  1. ADCIRCA (TADALFIL) [Concomitant]
  2. REMODULIN [Suspect]
     Active Substance: TREPROSTINIL
     Indication: PULMONARY ARTERIAL HYPERTENSION
     Route: 058
     Dates: start: 20111219, end: 20140707

REACTIONS (2)
  - Death [None]
  - Lung neoplasm malignant [None]

NARRATIVE: CASE EVENT DATE: 20140706
